FAERS Safety Report 9087711 (Version 1)
Quarter: 2013Q1

REPORT INFORMATION
  Report Type: Report from Study
  Country: CA (occurrence: CA)
  Receive Date: 20130201
  Receipt Date: 20130201
  Transmission Date: 20140127
  Serious: Yes (Hospitalization, Other)
  Sender: FDA-Public Use
  Company Number: CA-JNJFOC-20121102077

PATIENT
  Age: 56 Year
  Sex: Female
  Weight: 43 kg

DRUGS (11)
  1. REMICADE [Suspect]
     Indication: CROHN^S DISEASE
     Route: 042
     Dates: start: 20130122
  2. REMICADE [Suspect]
     Indication: CROHN^S DISEASE
     Route: 042
     Dates: start: 20111230, end: 20120911
  3. VITAMIN [Concomitant]
     Route: 065
  4. URSODIOL [Concomitant]
     Route: 065
  5. BUDESONIDE [Concomitant]
     Route: 065
  6. TYLENOL 3 [Concomitant]
     Route: 065
  7. PROPRANOLOL [Concomitant]
     Route: 065
  8. FLAGYL [Concomitant]
     Route: 065
  9. QUININE SULPHATE [Concomitant]
     Route: 065
  10. ACIDOPHILUS [Concomitant]
     Route: 065
  11. RANITIDINE [Concomitant]
     Route: 065

REACTIONS (2)
  - Intestinal operation [Recovered/Resolved]
  - Crohn^s disease [Unknown]
